FAERS Safety Report 9511068 (Version 1)
Quarter: 2013Q1

REPORT INFORMATION
  Report Type: Spontaneous
  Country: US (occurrence: None)
  Receive Date: 20130305
  Receipt Date: 20130305
  Transmission Date: 20140127
  Serious: Yes (Other)
  Sender: FDA-Public Use
  Company Number: 163-21880-12110970

PATIENT
  Sex: Male

DRUGS (1)
  1. REVLIMID (LENALIDOMIDE) (CAPSULES) [Suspect]
     Indication: PLASMA CELL MYELOMA
     Dosage: 21 IN 21 D
     Route: 048
     Dates: start: 20100520

REACTIONS (8)
  - Thrombosis [None]
  - Musculoskeletal stiffness [None]
  - Muscle spasms [None]
  - Headache [None]
  - Oedema [None]
  - Pneumonia [None]
  - Asthenia [None]
  - Weight decreased [None]
